FAERS Safety Report 17901686 (Version 1)
Quarter: 2020Q2

REPORT INFORMATION
  Report Type: Spontaneous
  Country: ES (occurrence: ES)
  Receive Date: 20200616
  Receipt Date: 20200616
  Transmission Date: 20200714
  Serious: Yes (Other)
  Sender: FDA-Public Use
  Company Number: ES-AMGEN-ESPSP2020092689

PATIENT
  Age: 69 Year
  Sex: Male

DRUGS (9)
  1. CALCIUM CARBONATE;COLECALCIFEROL [Concomitant]
     Active Substance: CALCIUM CARBONATE\CHOLECALCIFEROL
     Dosage: (1000MG / 880UI) ENVELOPES C / 30
  2. CALCIFEDIOL [Concomitant]
     Active Substance: CALCIFEDIOL
     Indication: OSTEOPOROSIS
     Dosage: 16000 INTERNATIONAL UNIT
     Route: 048
     Dates: start: 20150206
  3. TAMSULOSIN [Concomitant]
     Active Substance: TAMSULOSIN
     Indication: PRODUCT USED FOR UNKNOWN INDICATION
     Dosage: 0.4 MILLIGRAM, QD
     Route: 048
     Dates: start: 20091111
  4. PLAVIX [Concomitant]
     Active Substance: CLOPIDOGREL BISULFATE
     Indication: CORONARY ARTERY OCCLUSION
     Dosage: 75 MILLIGRAM, QD
     Route: 048
     Dates: start: 20191113
  5. ROSUVASTATIN. [Concomitant]
     Active Substance: ROSUVASTATIN
     Indication: CORONARY ARTERY OCCLUSION
     Dosage: 20 MILLIGRAM, QD
     Route: 048
     Dates: start: 20191112
  6. BROMAZEPAM [Concomitant]
     Active Substance: BROMAZEPAM
     Indication: PERSISTENT DEPRESSIVE DISORDER
     Dosage: 1.5 MILLIGRAM, QD
     Route: 048
     Dates: start: 20091111
  7. RAMIPRIL. [Concomitant]
     Active Substance: RAMIPRIL
     Indication: HYPERTENSION
     Dosage: 5 MILLIGRAM, QD
     Route: 048
     Dates: start: 20161011
  8. PROLIA [Suspect]
     Active Substance: DENOSUMAB
     Indication: OSTEOPOROSIS
     Dosage: 60 MILLIGRAM, Q6MO
     Route: 058
     Dates: start: 20150206
  9. SOLIFENACINA [Concomitant]
     Indication: NEUROGENIC BLADDER
     Dosage: 5 MILLIGRAM, QD
     Route: 048
     Dates: start: 20150602

REACTIONS (2)
  - Osteomyelitis [Recovering/Resolving]
  - Skin ulcer [Recovering/Resolving]

NARRATIVE: CASE EVENT DATE: 20200303
